FAERS Safety Report 8776772 (Version 1)
Quarter: 2012Q4

REPORT INFORMATION
  Report Type: 
  Country: US (occurrence: US)
  Receive Date: 20120911
  Receipt Date: 20120911
  Transmission Date: 20130627
  Serious: Yes (Other)
  Sender: FDA-Public Use
  Company Number: US-PFIZER INC-2012218623

PATIENT
  Sex: Male

DRUGS (3)
  1. VIAGRA [Suspect]
     Dosage: UNK
  2. CIALIS [Suspect]
     Dosage: UNK
  3. LEVITRA [Suspect]
     Dosage: UNK

REACTIONS (5)
  - Muscle spasms [Unknown]
  - Dysstasia [Unknown]
  - Bedridden [Unknown]
  - Back pain [Unknown]
  - Scrotal pain [Unknown]
